FAERS Safety Report 7537460-3 (Version None)
Quarter: 2011Q2

REPORT INFORMATION
  Report Type: 
  Country: None (occurrence: None)
  Receive Date: 20110609
  Receipt Date: 20110601
  Transmission Date: 20111010
  Serious: Yes (Other)
  Sender: FDA-Public Use
  Company Number: US-CEPHALON-2010003232

PATIENT
  Sex: Female
  Weight: 54 kg

DRUGS (4)
  1. LAMICTAL [Concomitant]
     Indication: MOOD SWINGS
  2. TOPAMAX [Concomitant]
     Indication: MOOD SWINGS
  3. CLONOPIN [Concomitant]
  4. NUVIGIL [Suspect]
     Route: 048
     Dates: start: 20100601, end: 20100601

REACTIONS (4)
  - DYSARTHRIA [None]
  - AGGRESSION [None]
  - AMNESIA [None]
  - DRY EYE [None]
